FAERS Safety Report 18469466 (Version 1)
Quarter: 2020Q4

REPORT INFORMATION
  Report Type: Spontaneous
  Country: DE (occurrence: DE)
  Receive Date: 20201105
  Receipt Date: 20201105
  Transmission Date: 20210114
  Serious: Yes (Life-Threatening, Hospitalization, Other)
  Sender: FDA-Public Use
  Company Number: DE-ASTRAZENECA-2020SF44373

PATIENT
  Age: 78 Year
  Sex: Female

DRUGS (15)
  1. EDOXABAN [Suspect]
     Active Substance: EDOXABAN TOSYLATE
     Route: 065
  2. TORASEMID [Concomitant]
     Active Substance: TORSEMIDE
     Dosage: 50 MG, 1-1-0-0
  3. REKAWAN RETARD [Concomitant]
     Dosage: 600 MG, 2-2-2-0
  4. METAMIZOL [Concomitant]
     Active Substance: METAMIZOLE SODIUM
     Dosage: 500 MG, 1-1-1-0
  5. MIRTAZAPIN [Concomitant]
     Active Substance: MIRTAZAPINE
     Dosage: 30 MG, 0-0-0-1
  6. LIPROLOG [Concomitant]
     Active Substance: INSULIN LISPRO
  7. TILIDINE/NALOXONE [Concomitant]
     Active Substance: NALOXONE HYDROCHLORIDE\TILIDINE HYDROCHLORIDE
     Dosage: 4|50 MG, 1-0-0-1
  8. PANTOPRAZOL [Concomitant]
     Active Substance: PANTOPRAZOLE SODIUM
     Dosage: 40 MG, 1-0-1-0
  9. LORAZEPAM. [Suspect]
     Active Substance: LORAZEPAM
     Route: 065
  10. PREGABALIN. [Suspect]
     Active Substance: PREGABALIN
     Route: 065
  11. LEVEMIR [Concomitant]
     Active Substance: INSULIN DETEMIR
     Dosage: 5 IE, 0-0-1-0
  12. BISOPROLOL [Concomitant]
     Active Substance: BISOPROLOL
     Dosage: 5 MG, 1-0-0-1
  13. COLECALCIFEROL [Concomitant]
     Active Substance: CHOLECALCIFEROL
     Dosage: 1000 IE, 1-0-0-0
  14. QUETIAPINE. [Suspect]
     Active Substance: QUETIAPINE
     Route: 048
  15. LERCANIDIPINE [Concomitant]
     Active Substance: LERCANIDIPINE
     Dosage: 20 MG, 1-0-0-0

REACTIONS (8)
  - Haematochezia [Unknown]
  - Anaemia [Unknown]
  - General physical health deterioration [Unknown]
  - Condition aggravated [Unknown]
  - Fatigue [Unknown]
  - Weight decreased [Unknown]
  - Abdominal distension [Unknown]
  - Pallor [Unknown]

NARRATIVE: CASE EVENT DATE: 20200728
